FAERS Safety Report 6287128-9 (Version None)
Quarter: 2009Q3

REPORT INFORMATION
  Report Type: 
  Country: None (occurrence: None)
  Receive Date: 20090728
  Receipt Date: 20090720
  Transmission Date: 20100115
  Serious: Yes (Hospitalization)
  Sender: FDA-Public Use
  Company Number: FR-SANOFI-SYNTHELABO-A02200901880

PATIENT
  Sex: Female

DRUGS (7)
  1. KARDEGIC [Interacting]
     Indication: DRUG USE FOR UNKNOWN INDICATION
     Route: 048
     Dates: end: 20090527
  2. HEPARIN [Interacting]
     Indication: ACUTE CORONARY SYNDROME
     Dosage: UNK
     Route: 042
     Dates: start: 20090523, end: 20090527
  3. HEPARIN [Interacting]
     Indication: PROPHYLAXIS
     Dosage: UNK
     Route: 042
     Dates: start: 20090523, end: 20090527
  4. PLAVIX [Suspect]
     Indication: DRUG USE FOR UNKNOWN INDICATION
     Route: 048
  5. STATINS [Concomitant]
     Indication: DRUG USE FOR UNKNOWN INDICATION
     Dosage: UNK
     Route: 065
  6. ANTIHYPERTENSIVE [Concomitant]
     Indication: HYPERTENSION
     Dosage: UNK
     Route: 065
  7. ORAL ANTIDIABETICS [Concomitant]
     Indication: DIABETES MELLITUS
     Dosage: UNK
     Route: 048

REACTIONS (2)
  - ANAEMIA [None]
  - DRUG INTERACTION [None]
